FAERS Safety Report 4731357-X (Version None)
Quarter: 2005Q3

REPORT INFORMATION
  Report Type: 
  Country: None (occurrence: None)
  Receive Date: 20050802
  Receipt Date: 20050728
  Transmission Date: 20060218
  Serious: Yes (Death)
  Sender: FDA-Public Use
  Company Number: 200512563FR

PATIENT
  Age: 80 Year
  Sex: Female

DRUGS (9)
  1. LASILIX [Suspect]
     Route: 048
     Dates: end: 20031211
  2. IMOVANE [Concomitant]
     Route: 048
     Dates: end: 20031208
  3. PLAVIX [Concomitant]
     Route: 048
     Dates: end: 20031211
  4. DIGOXINE NATIVELLE [Concomitant]
     Route: 048
     Dates: end: 20031211
  5. HALDOL [Concomitant]
     Route: 048
     Dates: end: 20031208
  6. MOPRAL [Concomitant]
     Route: 048
     Dates: end: 20031211
  7. OSTRAM [Concomitant]
     Route: 048
     Dates: end: 20031208
  8. SMECTA [Concomitant]
     Route: 048
     Dates: end: 20031208
  9. QUESTRAN [Concomitant]
     Route: 048
     Dates: end: 20031208

REACTIONS (3)
  - DEHYDRATION [None]
  - HYPOTENSION [None]
  - MARASMUS [None]
